FAERS Safety Report 25570800 (Version 3)
Quarter: 2025Q3

REPORT INFORMATION
  Report Type: Report from Study
  Country: IN (occurrence: IN)
  Receive Date: 20250717
  Receipt Date: 20250829
  Transmission Date: 20251021
  Serious: No
  Sender: ROCHE
  Company Number: IN-ROCHE-10000339493

PATIENT
  Age: 28 Year
  Sex: Male

DRUGS (3)
  1. TECENTRIQ [Suspect]
     Active Substance: ATEZOLIZUMAB
     Indication: Hepatocellular carcinoma
     Route: 042
     Dates: start: 20241011
  2. TECENTRIQ [Suspect]
     Active Substance: ATEZOLIZUMAB
     Route: 042
     Dates: start: 20250428
  3. MEGASTY [Concomitant]

REACTIONS (2)
  - Off label use [Unknown]
  - No adverse event [Unknown]

NARRATIVE: CASE EVENT DATE: 20250802
